FAERS Safety Report 5234919-9 (Version None)
Quarter: 2007Q1

REPORT INFORMATION
  Report Type: 
  Country: None (occurrence: None)
  Receive Date: 20070209
  Receipt Date: 20070130
  Transmission Date: 20070707
  Serious: Yes (Other)
  Sender: FDA-Public Use
  Company Number: US-PFIZER INC-2007009432

PATIENT
  Sex: Male
  Weight: 113.4 kg

DRUGS (6)
  1. LYRICA [Suspect]
     Indication: NEUROPATHY PERIPHERAL
  2. AMITRIPTYLINE HCL [Concomitant]
  3. ALL OTHER THERAPEUTIC PRODUCTS [Concomitant]
     Indication: BLOOD PRESSURE
  4. ALL OTHER THERAPEUTIC PRODUCTS [Concomitant]
     Indication: PROSTATIC DISORDER
  5. ALL OTHER THERAPEUTIC PRODUCTS [Concomitant]
     Indication: BLOOD CHOLESTEROL
  6. RANITIDINE [Concomitant]

REACTIONS (5)
  - DRUG EFFECT DECREASED [None]
  - PAIN IN EXTREMITY [None]
  - SOMNOLENCE [None]
  - TINNITUS [None]
  - VISION BLURRED [None]
